FAERS Safety Report 9456233 (Version 1)
Quarter: 2013Q3

REPORT INFORMATION
  Report Type: Spontaneous
  Country: US (occurrence: None)
  Receive Date: 20130812
  Receipt Date: 20130812
  Transmission Date: 20140515
  Serious: Yes (Life-Threatening, Disabling)
  Sender: FDA-Public Use
  Company Number: None

PATIENT
  Age: 70 Year
  Sex: Female
  Weight: 56.25 kg

DRUGS (1)
  1. MACROBID [Suspect]
     Indication: URINARY TRACT INFECTION BACTERIAL
     Route: 048
     Dates: start: 20130730, end: 20130731

REACTIONS (12)
  - Malaise [None]
  - No therapeutic response [None]
  - Asthenia [None]
  - Dyspnoea [None]
  - Disturbance in attention [None]
  - Tremor [None]
  - Tremor [None]
  - Confusional state [None]
  - Hypersomnia [None]
  - Hypopnoea [None]
  - Respiratory failure [None]
  - Gait disturbance [None]
